FAERS Safety Report 15180514 (Version 1)
Quarter: 2018Q3

REPORT INFORMATION
  Report Type: Spontaneous
  Country: US (occurrence: US)
  Receive Date: 20180623
  Receipt Date: 20180623
  Transmission Date: 20181010
  Serious: Yes (Disabling)
  Sender: FDA-Public Use
  Company Number: None

PATIENT
  Age: 12 Year
  Sex: Female
  Weight: 38.7 kg

DRUGS (1)
  1. FLUTICASONE PROPIONATE ? NASAL SPRAY USP [Suspect]
     Active Substance: FLUTICASONE PROPIONATE
     Indication: SINUSITIS
     Route: 055
     Dates: start: 20180516, end: 20180623

REACTIONS (4)
  - Condition aggravated [None]
  - Vomiting [None]
  - Product use issue [None]
  - Rhinorrhoea [None]

NARRATIVE: CASE EVENT DATE: 20180620
